FAERS Safety Report 18051409 (Version 2)
Quarter: 2021Q1

REPORT INFORMATION
  Report Type: Report from Study
  Country: US (occurrence: US)
  Receive Date: 20200721
  Receipt Date: 20210130
  Transmission Date: 20210419
  Serious: No
  Sender: FDA-Public Use
  Company Number: NVSC2020US203501

PATIENT
  Sex: Female

DRUGS (3)
  1. ILARIS [Suspect]
     Active Substance: CANAKINUMAB
     Indication: PRODUCT USED FOR UNKNOWN INDICATION
     Dosage: 300 MG, QMO
     Route: 058
     Dates: start: 20110901
  2. ILARIS [Suspect]
     Active Substance: CANAKINUMAB
     Dosage: 300 MG/KG, QMO
     Route: 050
  3. ILARIS [Suspect]
     Active Substance: CANAKINUMAB
     Dosage: 150 MG, QMO
     Route: 065

REACTIONS (10)
  - Influenza like illness [Unknown]
  - Weight decreased [Unknown]
  - Secretion discharge [Unknown]
  - Throat irritation [Unknown]
  - Sinus disorder [Unknown]
  - Nasopharyngitis [Unknown]
  - Discomfort [Unknown]
  - Hypersensitivity [Unknown]
  - Weight fluctuation [Unknown]
  - Influenza [Unknown]
